FAERS Safety Report 17105850 (Version 5)
Quarter: 2020Q2

REPORT INFORMATION
  Report Type: Report from Study
  Country: BR (occurrence: BR)
  Receive Date: 20191203
  Receipt Date: 20200506
  Transmission Date: 20200713
  Serious: No
  Sender: FDA-Public Use
  Company Number: NVSC2019BR056421

PATIENT
  Age: 38 Year
  Sex: Female
  Weight: 76 kg

DRUGS (3)
  1. PURON [Concomitant]
     Indication: THYROID CANCER
     Dosage: 1 DF, UNKNOWN
     Route: 048
     Dates: start: 2011
  2. COSENTYX [Suspect]
     Active Substance: SECUKINUMAB
     Indication: ANKYLOSING SPONDYLITIS
     Dosage: 150 MG QMO (STARTED BETWEEN LAST WEEK OF OCT 2018 OR FIRST WEEK OF NOV 2018) 1 AMPOULE
     Route: 065
     Dates: start: 2018, end: 20190611
  3. METFORMIN [Concomitant]
     Active Substance: METFORMIN HYDROCHLORIDE
     Indication: DIABETES MELLITUS
     Dosage: 1 DF, QD (500 MG)
     Route: 048
     Dates: start: 2014

REACTIONS (2)
  - Normal newborn [Unknown]
  - Maternal exposure during pregnancy [Unknown]

NARRATIVE: CASE EVENT DATE: 20190718
